FAERS Safety Report 10032757 (Version 1)
Quarter: 2014Q1

REPORT INFORMATION
  Report Type: Spontaneous
  Country: GB (occurrence: GB)
  Receive Date: 20140324
  Receipt Date: 20140324
  Transmission Date: 20141002
  Serious: Yes (Hospitalization)
  Sender: FDA-Public Use
  Company Number: GB-BRISTOL-MYERS SQUIBB COMPANY-20552832

PATIENT
  Age: 43 Year
  Sex: 0

DRUGS (1)
  1. FORXIGA [Suspect]

REACTIONS (1)
  - Ketoacidosis [Unknown]
